FAERS Safety Report 4457995-X (Version None)
Quarter: 2004Q3

REPORT INFORMATION
  Report Type: 
  Country: None (occurrence: None)
  Receive Date: 20040922
  Receipt Date: 20040831
  Transmission Date: 20050211
  Serious: Yes (Death, Hospitalization)
  Sender: FDA-Public Use
  Company Number: JP_040804278

PATIENT
  Age: 63 Year
  Sex: Male
  Weight: 53 kg

DRUGS (13)
  1. GEMZAR [Suspect]
     Indication: LUNG NEOPLASM MALIGNANT
     Dosage: 900 MG OTHER
     Dates: start: 20040609, end: 20040721
  2. TOPOTECIN (IRINOTECAN HYDROCHLORIDE) [Concomitant]
  3. BUFFERIN [Concomitant]
  4. APLACE (TROXIPIDE) [Concomitant]
  5. NIFEDIPINE [Concomitant]
  6. RHYTHYM (RILMAZAFONE) [Concomitant]
  7. PURSENNID [Concomitant]
  8. NAIXAN (NAPROXEN SODIUM) [Concomitant]
  9. UBRETID (DISTIGMINE BROMIDE) [Concomitant]
  10. FLIVAS (NAFTOPIDIL) [Concomitant]
  11. MAGNESIUM OXIDE [Concomitant]
  12. FENTANYL [Concomitant]
  13. OPSO (MORPHINE HYDROCHLORIDE) [Concomitant]

REACTIONS (7)
  - COUGH [None]
  - DYSPNOEA [None]
  - HYPOXIA [None]
  - INTERSTITIAL LUNG DISEASE [None]
  - MALIGNANT NEOPLASM PROGRESSION [None]
  - PYREXIA [None]
  - RESPIRATORY FAILURE [None]
